FAERS Safety Report 17016134 (Version 1)
Quarter: 2019Q4

REPORT INFORMATION
  Report Type: Spontaneous
  Country: DE (occurrence: DE)
  Receive Date: 20191111
  Receipt Date: 20191111
  Transmission Date: 20200122
  Serious: Yes (Other)
  Sender: FDA-Public Use
  Company Number: NVSC2019DE029728

PATIENT
  Sex: Female

DRUGS (1)
  1. LEVETIRACETAM. [Suspect]
     Active Substance: LEVETIRACETAM
     Indication: PRODUCT USED FOR UNKNOWN INDICATION
     Dosage: 750 MG, UNKNOWN
     Route: 065

REACTIONS (3)
  - Wrong technique in product usage process [Unknown]
  - Foreign body in respiratory tract [Unknown]
  - Product use complaint [Unknown]

NARRATIVE: CASE EVENT DATE: 20191105
